FAERS Safety Report 6570969-8 (Version None)
Quarter: 2010Q1

REPORT INFORMATION
  Report Type: 
  Country: None (occurrence: None)
  Receive Date: 20100204
  Receipt Date: 20100122
  Transmission Date: 20100710
  Serious: Yes (Hospitalization, Other)
  Sender: FDA-Public Use
  Company Number: PHHY2009DE41649

PATIENT
  Age: 86 Year
  Sex: Female
  Weight: 60 kg

DRUGS (3)
  1. CARBAMAZEPINE [Suspect]
     Indication: HEADACHE
     Dosage: 400 MG, BID
     Route: 048
     Dates: start: 20090902, end: 20090905
  2. BISOPROLOL PLUS [Suspect]
     Indication: HYPERTENSION
     Dosage: 5/12.5MG, 1 TABLET DAILY
     Route: 048
     Dates: end: 20090905
  3. LORZAAR [Concomitant]
     Indication: HYPERTENSION
     Dosage: 100 MG, QD
     Route: 048
     Dates: end: 20090905

REACTIONS (8)
  - ACTIVATED PARTIAL THROMBOPLASTIN TIME PROLONGED [None]
  - ASPARTATE AMINOTRANSFERASE INCREASED [None]
  - BLOOD UREA INCREASED [None]
  - DRUG LEVEL INCREASED [None]
  - HYPONATRAEMIA [None]
  - MALAISE [None]
  - SINUS BRADYCARDIA [None]
  - WHITE BLOOD CELL COUNT DECREASED [None]
